FAERS Safety Report 7653197-4 (Version None)
Quarter: 2011Q3

REPORT INFORMATION
  Report Type: 
  Country: None (occurrence: None)
  Receive Date: 20110728
  Receipt Date: 20110420
  Transmission Date: 20111222
  Serious: Yes (Other)
  Sender: FDA-Public Use
  Company Number: MSTR-PR-1104L-0095

PATIENT
  Age: 7 Year
  Sex: Female

DRUGS (1)
  1. METASTRON [Suspect]
     Indication: METASTATIC PAIN
     Dosage: 29.3 MBQ. SINGLE DOSE, INTRAVENOUS, ONCE
     Route: 042

REACTIONS (1)
  - PLATELET COUNT DECREASED [None]
